FAERS Safety Report 22600366 (Version 1)
Quarter: 2023Q2

REPORT INFORMATION
  Report Type: Spontaneous
  Country: EG (occurrence: EG)
  Receive Date: 20230614
  Receipt Date: 20230614
  Transmission Date: 20230721
  Serious: Yes (Hospitalization, Other)
  Sender: FDA-Public Use
  Company Number: EG-FreseniusKabi-FK202308018

PATIENT
  Age: 60 Year
  Sex: Female

DRUGS (2)
  1. GEMCITABINE HYDROCHLORIDE [Suspect]
     Active Substance: GEMCITABINE HYDROCHLORIDE
     Indication: Pancreatic carcinoma
     Dosage: INTRAVENOUS INFUSION DAY 1,8 ?THE CYCLE IS REPEATED EVERY 3 WEEKS.?5TH CYCLE RECEIVED ON 3/4/2023
  2. DOCETAXEL [Suspect]
     Active Substance: DOCETAXEL
     Indication: Pancreatic carcinoma
     Dosage: DAY 1 BY INTRAVENOUS INFUSION?THE CYCLE IS REPEATED EVERY 3 WEEKS?5TH CYCLE RECEIVED ON 3/4/2023

REACTIONS (3)
  - White blood cell count decreased [Recovering/Resolving]
  - Neutropenia [Recovering/Resolving]
  - Anaemia [Recovering/Resolving]
